FAERS Safety Report 11521426 (Version 1)
Quarter: 2015Q3

REPORT INFORMATION
  Report Type: Spontaneous
  Country: US (occurrence: US)
  Receive Date: 20150918
  Receipt Date: 20150918
  Transmission Date: 20151125
  Serious: No
  Sender: FDA-Public Use
  Company Number: US-ROCHE-729199

PATIENT
  Age: 50 Year
  Sex: Female
  Weight: 83.9 kg

DRUGS (7)
  1. LEXAPRO [Suspect]
     Active Substance: ESCITALOPRAM OXALATE
     Route: 065
  2. COPEGUS [Suspect]
     Active Substance: RIBAVIRIN
     Indication: HEPATITIS C
     Route: 048
  3. LEXAPRO [Suspect]
     Active Substance: ESCITALOPRAM OXALATE
     Indication: DEPRESSION
     Route: 065
  4. PHENERGAN [Concomitant]
     Active Substance: PROMETHAZINE HYDROCHLORIDE
     Route: 065
  5. PEGASYS [Suspect]
     Active Substance: PEGINTERFERON ALFA-2A
     Indication: HEPATITIS C
     Route: 058
     Dates: start: 20060123, end: 200610
  6. COPEGUS [Suspect]
     Active Substance: RIBAVIRIN
     Route: 048
  7. HCTZ [Concomitant]
     Active Substance: HYDROCHLOROTHIAZIDE
     Route: 065

REACTIONS (12)
  - Asthenia [Unknown]
  - Weight decreased [Recovered/Resolved]
  - Nausea [Unknown]
  - Pyrexia [Unknown]
  - Viral load increased [Unknown]
  - Pain [Recovering/Resolving]
  - Platelet count decreased [Recovered/Resolved]
  - Toxicity to various agents [Recovering/Resolving]
  - Anaemia [Recovered/Resolved]
  - Headache [Unknown]
  - Depression [Recovering/Resolving]
  - Feeling abnormal [Unknown]

NARRATIVE: CASE EVENT DATE: 200610
